FAERS Safety Report 4516996-3 (Version None)
Quarter: 2004Q4

REPORT INFORMATION
  Report Type: 
  Country: None (occurrence: None)
  Receive Date: 20041029
  Receipt Date: 20040924
  Transmission Date: 20050328
  Serious: No
  Sender: FDA-Public Use
  Company Number: 2004-120652-NL

PATIENT
  Age: 29 Year
  Sex: Female
  Weight: 47.6 kg

DRUGS (2)
  1. NUVARING [Suspect]
     Indication: OVULATION INDUCTION
     Dosage: DF DAILY VAGINAL
     Route: 067
     Dates: start: 20040915
  2. VITAMIN C [Concomitant]

REACTIONS (4)
  - HEADACHE [None]
  - NAUSEA [None]
  - SINUSITIS [None]
  - UPPER RESPIRATORY TRACT INFECTION [None]
